FAERS Safety Report 25480368 (Version 1)
Quarter: 2025Q2

REPORT INFORMATION
  Report Type: Spontaneous
  Country: FR (occurrence: FR)
  Receive Date: 20250625
  Receipt Date: 20250625
  Transmission Date: 20250717
  Serious: Yes (Other)
  Sender: PFIZER
  Company Number: FR-PFIZER INC-PV202500075458

PATIENT
  Age: 69 Year
  Sex: Male

DRUGS (1)
  1. LORLATINIB [Suspect]
     Active Substance: LORLATINIB
     Dosage: 5 MG, DAILY

REACTIONS (1)
  - Suicide attempt [Unknown]
